FAERS Safety Report 6388642-8 (Version None)
Quarter: 2009Q4

REPORT INFORMATION
  Report Type: 
  Country: None (occurrence: None)
  Receive Date: 20091005
  Receipt Date: 20090930
  Transmission Date: 20100525
  Serious: Yes (Hospitalization)
  Sender: FDA-Public Use
  Company Number: GR-ABBOTT-09P-066-0595933-00

PATIENT
  Age: 51 Year
  Sex: Male
  Weight: 74.5 kg

DRUGS (12)
  1. ZEMPLAR [Suspect]
     Indication: HYPERPARATHYROIDISM SECONDARY
     Route: 042
     Dates: start: 20090520
  2. EPREX [Concomitant]
     Indication: DRUG USE FOR UNKNOWN INDICATION
  3. FERROVIN [Concomitant]
     Indication: DRUG USE FOR UNKNOWN INDICATION
  4. SUPERAMIN [Concomitant]
     Indication: DRUG USE FOR UNKNOWN INDICATION
  5. NEUROBION [Concomitant]
     Indication: DRUG USE FOR UNKNOWN INDICATION
  6. NEXIUM [Concomitant]
     Indication: DRUG USE FOR UNKNOWN INDICATION
  7. FILLICINE [Concomitant]
     Indication: DRUG USE FOR UNKNOWN INDICATION
  8. LOSEC [Concomitant]
     Indication: DRUG USE FOR UNKNOWN INDICATION
  9. FORSENOL [Concomitant]
     Indication: DRUG USE FOR UNKNOWN INDICATION
  10. MIMPARA [Concomitant]
     Indication: DRUG USE FOR UNKNOWN INDICATION
  11. LEPUR [Concomitant]
     Indication: HYPERLIPIDAEMIA
     Route: 048
     Dates: start: 20090901
  12. SALOSPIR [Concomitant]
     Indication: HYPERLIPIDAEMIA
     Route: 048
     Dates: start: 20090901

REACTIONS (1)
  - ANGINA PECTORIS [None]
